FAERS Safety Report 20411067 (Version 1)
Quarter: 2022Q1

REPORT INFORMATION
  Report Type: Spontaneous
  Country: US (occurrence: None)
  Receive Date: 20220131
  Receipt Date: 20220131
  Transmission Date: 20220424
  Serious: No
  Sender: FDA-Public Use
  Company Number: None

PATIENT
  Age: 37 Year
  Sex: Male

DRUGS (1)
  1. RENFLEXIS [Suspect]
     Active Substance: INFLIXIMAB-ABDA
     Indication: Crohn^s disease
     Dosage: FREQUENCY : ONCE;?
     Route: 042
     Dates: start: 20210812, end: 20210812

REACTIONS (13)
  - Rash [None]
  - Paraesthesia [None]
  - Rash [None]
  - Arthralgia [None]
  - Oedema peripheral [None]
  - Oedema peripheral [None]
  - Lupus-like syndrome [None]
  - Serum sickness [None]
  - Arthralgia [None]
  - Aspartate aminotransferase increased [None]
  - Alanine aminotransferase increased [None]
  - Therapy interrupted [None]
  - Histone antibody negative [None]

NARRATIVE: CASE EVENT DATE: 20210812
